FAERS Safety Report 8329612-X (Version None)
Quarter: 2012Q2

REPORT INFORMATION
  Report Type: 
  Country: None (occurrence: None)
  Receive Date: 20120430
  Receipt Date: 20120416
  Transmission Date: 20120825
  Serious: Yes (Other)
  Sender: FDA-Public Use
  Company Number: DE-1191681

PATIENT
  Age: 28 Year
  Sex: Female

DRUGS (2)
  1. DEXAMETHASONE [Suspect]
     Indication: POSTOPERATIVE CARE
     Dosage: OPHTHALMIC
     Route: 047
  2. MAXIDEX [Suspect]
     Indication: POSTOPERATIVE CARE
     Dosage: OPHTHALMIC
     Route: 047

REACTIONS (7)
  - TUNNEL VISION [None]
  - GLAUCOMA [None]
  - CORNEAL OPACITY [None]
  - MIGRAINE WITH AURA [None]
  - BLINDNESS UNILATERAL [None]
  - CORNEAL INFILTRATES [None]
  - OPTIC NEURITIS [None]
